FAERS Safety Report 5385351-9 (Version None)
Quarter: 2007Q3

REPORT INFORMATION
  Report Type: 
  Country: None (occurrence: None)
  Receive Date: 20070709
  Receipt Date: 20070709
  Transmission Date: 20080115
  Serious: Yes (Death, Life-Threatening, Hospitalization)
  Sender: FDA-Public Use
  Company Number: None

PATIENT
  Age: 78 Year
  Sex: Male
  Weight: 119 kg

DRUGS (15)
  1. COUMADIN [Suspect]
     Indication: ATRIAL FIBRILLATION
     Dosage: 5 MG DAILY PO
     Route: 048
     Dates: start: 20070507, end: 20070507
  2. HEPARIN [Suspect]
     Indication: ATRIAL FIBRILLATION
     Dosage: 2700 UNITS PER HOURS IV
     Route: 042
     Dates: start: 20070505, end: 20070508
  3. SINEMET [Concomitant]
  4. DILAUDID [Concomitant]
  5. PEPCID [Concomitant]
  6. PREVACID [Concomitant]
  7. ANZEMET [Concomitant]
  8. TYLENOL [Concomitant]
  9. REGLAN [Concomitant]
  10. NORVASC [Concomitant]
  11. ADVAIR DISKUS 100/50 [Concomitant]
  12. LOTENSIN [Concomitant]
  13. CELEBREX [Concomitant]
  14. AMIODARONE HCL [Concomitant]
  15. LYRICA [Concomitant]

REACTIONS (8)
  - ATRIAL FIBRILLATION [None]
  - DEPRESSED LEVEL OF CONSCIOUSNESS [None]
  - HAEMODIALYSIS [None]
  - METABOLIC ACIDOSIS [None]
  - POST PROCEDURAL COMPLICATION [None]
  - RENAL FAILURE [None]
  - RETROPERITONEAL HAEMORRHAGE [None]
  - SHOCK [None]
